FAERS Safety Report 20696218 (Version 1)
Quarter: 2022Q2

REPORT INFORMATION
  Report Type: Spontaneous
  Country: US (occurrence: US)
  Receive Date: 20220411
  Receipt Date: 20220411
  Transmission Date: 20220721
  Serious: No
  Sender: FDA-Public Use
  Company Number: US-ALIMERA SCIENCES INC.-US-A16013-22-000081

PATIENT
  Age: 44 Year
  Sex: Male

DRUGS (2)
  1. ILUVIEN [Suspect]
     Active Substance: FLUOCINOLONE ACETONIDE
     Indication: Uveitis
     Dosage: 0.25 MICROGRAM, QD -UNKNOWN EYE
     Route: 031
  2. ILUVIEN [Suspect]
     Active Substance: FLUOCINOLONE ACETONIDE
     Indication: Polychondritis

REACTIONS (3)
  - Device dislocation [Recovered/Resolved]
  - Medical device removal [Recovered/Resolved]
  - Off label use [Unknown]
